FAERS Safety Report 8190104-2 (Version None)
Quarter: 2012Q1

REPORT INFORMATION
  Report Type: 
  Country: None (occurrence: None)
  Receive Date: 20120307
  Receipt Date: 20120307
  Transmission Date: 20120608
  Serious: Yes (Life-Threatening)
  Sender: FDA-Public Use
  Company Number: None

PATIENT
  Age: 59 Year
  Sex: Male
  Weight: 100.24 kg

DRUGS (1)
  1. CITALOPRAM HYDROBROMIDE [Suspect]
     Indication: DEPRESSION
     Dates: start: 20120219, end: 20120304

REACTIONS (4)
  - PERIPHERAL COLDNESS [None]
  - HEADACHE [None]
  - SEROTONIN SYNDROME [None]
  - INSOMNIA [None]
